FAERS Safety Report 6736428-4 (Version None)
Quarter: 2010Q2

REPORT INFORMATION
  Report Type: 
  Country: None (occurrence: None)
  Receive Date: 20100521
  Receipt Date: 20100514
  Transmission Date: 20101027
  Serious: Yes (Hospitalization, Other)
  Sender: FDA-Public Use
  Company Number: US-MERCK-0805USA00916

PATIENT
  Age: 83 Year
  Sex: Female
  Weight: 60 kg

DRUGS (2)
  1. FOSAMAX [Suspect]
     Indication: OSTEOPOROSIS
     Route: 048
     Dates: start: 19950101, end: 20060101
  2. FOSAMAX [Suspect]
     Route: 048

REACTIONS (56)
  - ABSCESS [None]
  - ACTINIC ELASTOSIS [None]
  - ACUTE SINUSITIS [None]
  - ANXIETY [None]
  - APHASIA [None]
  - ARTHRALGIA [None]
  - ATRIAL FIBRILLATION [None]
  - BENIGN NEOPLASM [None]
  - BRAIN MASS [None]
  - BRONCHITIS [None]
  - CACHEXIA [None]
  - CARDIAC DISORDER [None]
  - CERVICOBRACHIAL SYNDROME [None]
  - CHRONIC OBSTRUCTIVE PULMONARY DISEASE [None]
  - DRUG INTOLERANCE [None]
  - DUPUYTREN'S CONTRACTURE [None]
  - DYSPNOEA [None]
  - EPISTAXIS [None]
  - ESSENTIAL HYPERTENSION [None]
  - FIBROMYALGIA [None]
  - FISTULA [None]
  - HEADACHE [None]
  - HYDROCEPHALUS [None]
  - HYPERGAMMAGLOBULINAEMIA BENIGN MONOCLONAL [None]
  - HYPERLIPIDAEMIA [None]
  - HYPERNATRAEMIA [None]
  - HYPOKALAEMIA [None]
  - HYPOMAGNESAEMIA [None]
  - HYPOTENSION [None]
  - HYPOTHYROIDISM [None]
  - INFECTION [None]
  - INSOMNIA [None]
  - LENTIGO [None]
  - LEUKOCYTOSIS [None]
  - MUSCLE STRAIN [None]
  - MYALGIA [None]
  - NEUROPATHY PERIPHERAL [None]
  - NODULE [None]
  - OSTEOARTHRITIS [None]
  - OSTEOMYELITIS [None]
  - OSTEONECROSIS [None]
  - OSTEONECROSIS OF JAW [None]
  - PERIVASCULAR DERMATITIS [None]
  - PNEUMONIA [None]
  - POLYMYALGIA RHEUMATICA [None]
  - PROTEIN TOTAL ABNORMAL [None]
  - PRURITUS [None]
  - PULMONARY HYPERTENSION [None]
  - SKIN LACERATION [None]
  - SKIN ULCER [None]
  - SPINAL COMPRESSION FRACTURE [None]
  - UPPER LIMB FRACTURE [None]
  - VASOGENIC CEREBRAL OEDEMA [None]
  - VENOUS INSUFFICIENCY [None]
  - VENTRICULAR EXTRASYSTOLES [None]
  - WRIST FRACTURE [None]
